FAERS Safety Report 10418647 (Version 1)
Quarter: 2014Q2

REPORT INFORMATION
  Report Type: Spontaneous
  Country: US (occurrence: None)
  Receive Date: 20140616
  Receipt Date: 20140616
  Transmission Date: 20141212
  Serious: Yes (Other)
  Sender: FDA-Public Use
  Company Number: 2014-000136

PATIENT
  Age: 77 Year
  Sex: Female

DRUGS (2)
  1. ACTONEL (RISEDRONATE SODIUM) TABLET, UNK MG [Suspect]
     Indication: OSTEOPOROSIS PROPHYLAXIS
     Dosage: DOSAGE/FREQUENCY UNKNOWN, ORAL
     Route: 048
  2. ALENDRONATE SODIUM (ALENDRONATE SODIUM) (ALENDRONATE SODIUM) [Suspect]
     Indication: OSTEOPOROSIS PROPHYLAXIS

REACTIONS (2)
  - Femur fracture [None]
  - Pain [None]
